FAERS Safety Report 16565456 (Version 1)
Quarter: 2019Q3

REPORT INFORMATION
  Report Type: Spontaneous
  Country: DE (occurrence: DE)
  Receive Date: 20190712
  Receipt Date: 20190712
  Transmission Date: 20191004
  Serious: Yes (Hospitalization)
  Sender: FDA-Public Use
  Company Number: DE-TEVA-2019-DE-1075167

PATIENT
  Age: 76 Year
  Sex: Male
  Weight: 98 kg

DRUGS (7)
  1. ALLOBETA 300 [Concomitant]
     Dosage: 300 MG, 0-1-0-0, TABLETS
     Route: 048
  2. TAMSULOSIN HEXAL 0,4MG [Concomitant]
     Dosage: 0.4 MG, 0-0-1-0, SUSTAINED-RELEASE TABLETS
     Route: 048
  3. BISOPROLOL [Suspect]
     Active Substance: BISOPROLOL
     Dosage: 2.5 MG, 1-0-0-0, TABLETS
     Route: 048
  4. ASS 100 [Concomitant]
     Active Substance: ASPIRIN
     Dosage: 100 MG, 1-0-0-0, TABLETS
     Route: 048
  5. NOVAMINSULFON TROPFEN-1A PHARMA [Concomitant]
     Dosage: BEDARF, TROPFEN
     Route: 048
  6. THYRONAJOD 75 HENNING [Concomitant]
     Dosage: 75 MICROGRAM, 1-0-0-0, TABLETS
     Route: 048
  7. HCT BETA [Concomitant]
     Active Substance: HYDROCHLOROTHIAZIDE
     Dosage: 25 MG, 1-0-0-0, TABLETS
     Route: 048

REACTIONS (4)
  - Hypertension [Unknown]
  - Bradycardia [Unknown]
  - Restlessness [Unknown]
  - Angina pectoris [Unknown]
